FAERS Safety Report 12763141 (Version 1)
Quarter: 2016Q3

REPORT INFORMATION
  Report Type: Spontaneous
  Country: US (occurrence: US)
  Receive Date: 20160916
  Receipt Date: 20160916
  Transmission Date: 20161109
  Serious: Yes (Other)
  Sender: FDA-Public Use
  Company Number: None

PATIENT

DRUGS (1)
  1. ANORO ELLIPTA [Suspect]
     Active Substance: UMECLIDINIUM BROMIDE\VILANTEROL TRIFENATATE
     Dosage: 1 PUFF ONE DAILY BY MOUTH
     Route: 048
     Dates: start: 20150901, end: 20160722

REACTIONS (4)
  - Muscle spasms [None]
  - Visual impairment [None]
  - Swollen tongue [None]
  - Heart rate irregular [None]

NARRATIVE: CASE EVENT DATE: 20160916
